FAERS Safety Report 12510857 (Version 1)
Quarter: 2016Q2

REPORT INFORMATION
  Report Type: Spontaneous
  Country: JP (occurrence: JP)
  Receive Date: 20160629
  Receipt Date: 20160629
  Transmission Date: 20160815
  Serious: Yes (Hospitalization)
  Sender: FDA-Public Use
  Company Number: JP-DSJP-DSJ-2016-116458

PATIENT

DRUGS (1)
  1. LIXIANA TABLETS 15MG [Suspect]
     Active Substance: EDOXABAN TOSILATE MONOHYDRATE
     Indication: JOINT ARTHROPLASTY
     Dosage: 15 MG, QD
     Route: 048
     Dates: start: 20160503, end: 20160504

REACTIONS (1)
  - Purpura [Recovering/Resolving]

NARRATIVE: CASE EVENT DATE: 20160504
